FAERS Safety Report 13855579 (Version 1)
Quarter: 2017Q3

REPORT INFORMATION
  Report Type: Spontaneous
  Country: US (occurrence: US)
  Receive Date: 20170810
  Receipt Date: 20170810
  Transmission Date: 20171127
  Serious: No
  Sender: FDA-Public Use
  Company Number: US-VIFOR (INTERNATIONAL) INC.-VIT-2017-04901

PATIENT
  Sex: Male

DRUGS (16)
  1. VENLAFAXINE HYDROCHLORIDE. [Concomitant]
     Active Substance: VENLAFAXINE HYDROCHLORIDE
  2. TENEX [Concomitant]
     Active Substance: GUANFACINE HYDROCHLORIDE
  3. COREG [Concomitant]
     Active Substance: CARVEDILOL
  4. VELTASSA [Suspect]
     Active Substance: PATIROMER
     Indication: HYPERKALAEMIA
     Route: 048
     Dates: start: 20160422
  5. ASCORBIC ACID. [Concomitant]
     Active Substance: ASCORBIC ACID
  6. LANTUS SOLOSTAR [Concomitant]
     Active Substance: INSULIN GLARGINE
  7. GABAPENTIN. [Concomitant]
     Active Substance: GABAPENTIN
  8. LINUM USITATISSIMUM SEED OIL [Concomitant]
  9. NOVOLOG MIX 70/30 [Concomitant]
     Active Substance: INSULIN ASPART
  10. ASPIR-81 [Concomitant]
     Active Substance: ASPIRIN
  11. NORCO [Concomitant]
     Active Substance: ACETAMINOPHEN\HYDROCODONE BITARTRATE
  12. LIPITOR [Concomitant]
     Active Substance: ATORVASTATIN CALCIUM
  13. GLUCOSAMINE SULFATE [Concomitant]
     Active Substance: GLUCOSAMINE SULFATE
  14. FUROSEMIDE. [Concomitant]
     Active Substance: FUROSEMIDE
  15. HYDRALAZINE HYDROCHLORIDE. [Concomitant]
     Active Substance: HYDRALAZINE HYDROCHLORIDE
  16. AMLODIPINE BESILATE [Concomitant]
     Active Substance: AMLODIPINE BESYLATE

REACTIONS (2)
  - Product solubility abnormal [Unknown]
  - Product physical issue [Unknown]
